FAERS Safety Report 8821803 (Version 1)
Quarter: 2012Q4

REPORT INFORMATION
  Report Type: 
  Country: US (occurrence: US)
  Receive Date: 20121002
  Receipt Date: 20121002
  Transmission Date: 20130627
  Serious: No
  Sender: FDA-Public Use
  Company Number: US-VERTEX PHARMACEUTICAL INC.-2012-020696

PATIENT
  Age: 62 Year
  Sex: Female
  Weight: 65 kg

DRUGS (12)
  1. VX-950 [Suspect]
     Indication: HEPATITIS C
     Dosage: 750 mg, tid
     Route: 048
  2. PEGASYS [Suspect]
     Indication: HEPATITIS C
     Dosage: UNK
  3. RIBAPAK [Concomitant]
     Indication: HEPATITIS C
  4. CYMBALTA [Concomitant]
     Dosage: 20 mg, UNK
  5. FUROSEMIDE [Concomitant]
     Dosage: 20 mg, UNK
  6. LANTUS [Concomitant]
  7. NORTRIPTYLIN [Concomitant]
     Dosage: 25 mg, UNK
  8. CLONAZEPAM [Concomitant]
     Dosage: .5 mg, UNK
  9. METFORMIN [Concomitant]
     Dosage: 500 mg, UNK
  10. LISINOPRIL [Concomitant]
     Dosage: 10 mg, UNK
  11. DILTIAZEM [Concomitant]
     Dosage: 120 mg, UNK
  12. COMBIVENT [Concomitant]

REACTIONS (2)
  - Injection site erythema [Unknown]
  - Injection site warmth [Unknown]
